FAERS Safety Report 6199920-X (Version None)
Quarter: 2009Q2

REPORT INFORMATION
  Report Type: 
  Country: None (occurrence: None)
  Receive Date: 20090520
  Receipt Date: 20090520
  Transmission Date: 20091009
  Serious: No
  Sender: FDA-Public Use
  Company Number: None

PATIENT
  Age: 7 Year
  Sex: Male
  Weight: 26.3086 kg

DRUGS (1)
  1. FOCALIN XR [Suspect]
     Indication: ATTENTION DEFICIT/HYPERACTIVITY DISORDER
     Dosage: ONE 15MG CAPSULE DAILY TRANSDERMAL; PO
     Route: 048
     Dates: start: 20081101, end: 20090519

REACTIONS (2)
  - DRUG ERUPTION [None]
  - PITYRIASIS ROSEA [None]
